FAERS Safety Report 8920028 (Version 1)
Quarter: 2012Q4

REPORT INFORMATION
  Report Type: 
  Country: US (occurrence: US)
  Receive Date: 20121121
  Receipt Date: 20121121
  Transmission Date: 20130627
  Serious: No
  Sender: FDA-Public Use
  Company Number: US-009507513-1211USA006600

PATIENT
  Age: 47 Year
  Sex: Female

DRUGS (5)
  1. PEGINTRON [Suspect]
     Indication: HEPATITIS C
     Dosage: 120 Microgram, qw, Redipen
     Route: 058
     Dates: start: 20121107
  2. RIBAVIRIN [Suspect]
  3. ZOLOFT [Concomitant]
  4. BENADRYL [Concomitant]
  5. TRAZODONE HYDROCHLORIDE [Concomitant]

REACTIONS (4)
  - Chills [Recovering/Resolving]
  - Pyrexia [Recovering/Resolving]
  - Headache [Recovering/Resolving]
  - Palpitations [Recovering/Resolving]
